FAERS Safety Report 4353176-9 (Version None)
Quarter: 2004Q2

REPORT INFORMATION
  Report Type: 
  Country: None (occurrence: None)
  Receive Date: 20040504
  Receipt Date: 20040504
  Transmission Date: 20050107
  Serious: No
  Sender: FDA-Public Use
  Company Number: None

PATIENT
  Age: 41 Year
  Sex: Female
  Weight: 45.3597 kg

DRUGS (1)
  1. BACLOFEN [Suspect]
     Indication: HYPERTONIA
     Dosage: 10-15 MG TID -QID BY MOUTH
     Dates: start: 20040202, end: 20040217

REACTIONS (1)
  - NEUTROPENIA [None]
